FAERS Safety Report 6635138-1 (Version None)
Quarter: 2010Q1

REPORT INFORMATION
  Report Type: 
  Country: None (occurrence: None)
  Receive Date: 20100315
  Receipt Date: 20100305
  Transmission Date: 20100710
  Serious: Yes (Hospitalization, Other)
  Sender: FDA-Public Use
  Company Number: PHEH2008US07319

PATIENT
  Sex: Female
  Weight: 32.8 kg

DRUGS (17)
  1. ELIDEL [Suspect]
     Indication: ECZEMA
     Dosage: 100 MG, BID
     Route: 061
     Dates: start: 20031230
  2. PROTOPIC [Suspect]
     Indication: ECZEMA
     Dosage: UNK
  3. CEFTIN [Concomitant]
     Dosage: 250 MG, BID
     Route: 048
     Dates: start: 20070202
  4. AMOXICILLIN [Concomitant]
     Dosage: 250 MG, TID
     Route: 048
     Dates: start: 20071221
  5. HYDROXYZINE [Concomitant]
     Dosage: 10 MG, Q6H
     Route: 048
     Dates: start: 20080128
  6. ALBUTEROL [Concomitant]
     Dosage: UNK
  7. KEFZOL [Concomitant]
     Dosage: 650 MG, Q8H
     Dates: start: 20071005
  8. FLUZONE [Concomitant]
     Dosage: 0.5 ML, ONCE
     Route: 030
     Dates: start: 20071011
  9. PNEUMOCOCCAL VACCINE [Concomitant]
     Dosage: 0.5 ML, UNK
     Route: 030
     Dates: start: 20071011
  10. ZANTAC [Concomitant]
     Dosage: 26 MG, Q8H
     Dates: start: 20071011
  11. TYLENOL-500 [Concomitant]
     Dosage: 325 MG, PRN
     Route: 048
     Dates: start: 20071011
  12. MORPHINE [Concomitant]
     Dosage: 2 MG, PRN
     Dates: start: 20071004
  13. FENTANYL [Concomitant]
     Dosage: 26 MCG, QH
     Dates: start: 20071004
  14. HEPATITIS A VACCINE [Concomitant]
     Dosage: 750 UNITS
     Dates: start: 20060308
  15. POLIOVIRUS VACCINE ^BERNA^ [Concomitant]
     Dosage: UNK
     Dates: start: 20060106
  16. INFLUENZA VACCINE [Concomitant]
     Dosage: UNK
     Dates: start: 20071112
  17. DPT VACCINE [Concomitant]
     Dosage: UNK
     Dates: start: 20060106

REACTIONS (29)
  - ABDOMINAL DISCOMFORT [None]
  - ABDOMINAL PAIN UPPER [None]
  - ASTHENIA [None]
  - BRONCHITIS CHRONIC [None]
  - BRONCHOSCOPY [None]
  - COUGH [None]
  - DECREASED APPETITE [None]
  - DIARRHOEA [None]
  - FOREIGN BODY [None]
  - HEADACHE [None]
  - INJURY [None]
  - LUNG NEOPLASM MALIGNANT [None]
  - LUNG NEOPLASM SURGERY [None]
  - MIGRAINE [None]
  - MUCOEPIDERMOID CARCINOMA [None]
  - NAUSEA [None]
  - NON-CARDIAC CHEST PAIN [None]
  - OROPHARYNGEAL PAIN [None]
  - PALLOR [None]
  - PHONOPHOBIA [None]
  - PHOTOPHOBIA [None]
  - PNEUMONECTOMY [None]
  - PNEUMONIA [None]
  - PYREXIA [None]
  - RASH [None]
  - RHINORRHOEA [None]
  - STREPTOCOCCAL INFECTION [None]
  - UPPER RESPIRATORY TRACT INFECTION [None]
  - VOMITING [None]
